FAERS Safety Report 10211262 (Version 1)
Quarter: 2014Q2

REPORT INFORMATION
  Report Type: Spontaneous
  Country: US (occurrence: US)
  Receive Date: 20140602
  Receipt Date: 20140602
  Transmission Date: 20141212
  Serious: Yes (Hospitalization)
  Sender: FDA-Public Use
  Company Number: US-GLAXOSMITHKLINE-A1074763A

PATIENT
  Age: 47 Year
  Sex: Female

DRUGS (9)
  1. ADVAIR HFA [Suspect]
     Indication: ASTHMA
     Dosage: 1PUFF TWICE PER DAY
     Route: 055
     Dates: start: 2011
  2. VENTOLIN [Suspect]
     Indication: ASTHMA
     Dosage: 2PUFF SEE DOSAGE TEXT
     Route: 055
     Dates: start: 2011
  3. ATENOLOL [Suspect]
     Indication: PRODUCT USED FOR UNKNOWN INDICATION
     Route: 065
  4. GLIMEPIRIDE [Concomitant]
  5. POTASSIUM [Concomitant]
  6. FUROSEMIDE [Concomitant]
  7. ASPIRIN [Concomitant]
  8. PRAVASTATIN [Concomitant]
  9. GENERIC TYLENOL [Concomitant]

REACTIONS (9)
  - Atrial fibrillation [Recovering/Resolving]
  - Oxygen supplementation [Recovering/Resolving]
  - Bronchitis [Recovering/Resolving]
  - Heart rate increased [Recovering/Resolving]
  - Nasopharyngitis [Recovering/Resolving]
  - Wheezing [Recovering/Resolving]
  - Dyspnoea [Recovering/Resolving]
  - Chest discomfort [Recovering/Resolving]
  - Sinusitis [Recovering/Resolving]
